FAERS Safety Report 16131942 (Version 2)
Quarter: 2020Q3

REPORT INFORMATION
  Report Type: Spontaneous
  Country: US (occurrence: US)
  Receive Date: 20190329
  Receipt Date: 20200825
  Transmission Date: 20201102
  Serious: No
  Sender: FDA-Public Use
  Company Number: US-ELI_LILLY_AND_COMPANY-US201903011737

PATIENT
  Sex: Male

DRUGS (1)
  1. HUMALOG [Suspect]
     Active Substance: INSULIN LISPRO
     Indication: TYPE 1 DIABETES MELLITUS
     Dosage: UNK UNK, UNKNOWN
     Route: 065
     Dates: start: 1970

REACTIONS (6)
  - Sensory loss [Not Recovered/Not Resolved]
  - Dysphemia [Unknown]
  - Memory impairment [Unknown]
  - Visual impairment [Not Recovered/Not Resolved]
  - Product dose omission issue [Unknown]
  - Incorrect dose administered [Unknown]
